FAERS Safety Report 7996076-5 (Version None)
Quarter: 2011Q4

REPORT INFORMATION
  Report Type: 
  Country: None (occurrence: None)
  Receive Date: 20111220
  Receipt Date: 20111212
  Transmission Date: 20120403
  Serious: Yes (Hospitalization)
  Sender: FDA-Public Use
  Company Number: PHHY2011US50015

PATIENT
  Sex: Male
  Weight: 117.1 kg

DRUGS (21)
  1. AMLODIPINE [Concomitant]
     Dosage: 10 MG, DAILY
  2. CARVEDILOL [Concomitant]
     Dosage: 25 MG, BID
     Route: 048
  3. POTASSIUM CHLORIDE [Concomitant]
     Dosage: UNK UKN, UNK
  4. GEMFIBROZIL [Concomitant]
     Dosage: 600 MG, BID
  5. MIRALAX [Concomitant]
     Dosage: 17 G, UNK
     Route: 048
  6. VIDAZA [Concomitant]
     Indication: MYELODYSPLASTIC SYNDROME
  7. ALPRAZOLAM [Concomitant]
     Dosage: 1 MG, UNK
  8. CATAPRES-TTS-1 [Concomitant]
  9. LANTUS [Concomitant]
     Dosage: 66 U, BID
  10. FINASTERIDE [Concomitant]
     Dosage: UNK UKN, UNK
  11. EXJADE [Suspect]
     Indication: LYMPHOPROLIFERATIVE DISORDER
  12. LISINOPRIL [Concomitant]
     Dosage: 40 MG, BID
  13. PREDNISOLONE [Concomitant]
     Dosage: 20 MG, DAILY
     Route: 048
  14. DILTIAZEM HCL [Concomitant]
     Dosage: 240 MG, DAILY
  15. HELIOX [Concomitant]
     Dosage: UNK UKN, UNK
  16. EXJADE [Suspect]
     Indication: MAGNESIUM METABOLISM DISORDER
  17. SIMVASTATIN [Concomitant]
     Dosage: 80 MG, UNK
  18. EXJADE [Suspect]
     Indication: HAEMOCHROMATOSIS
     Dosage: 2250 MG, DAILY
     Route: 048
     Dates: start: 20110411
  19. CLOBETASOL PROPIONATE [Concomitant]
     Dosage: UNK UKN, UNK
  20. BUMETANIDE [Concomitant]
     Dosage: 2 MG, BID
  21. TERAZOSIN HCL [Concomitant]
     Dosage: UNK UKN, UNK

REACTIONS (16)
  - FATIGUE [None]
  - PULMONARY CONGESTION [None]
  - DYSPNOEA [None]
  - ANAEMIA [None]
  - PNEUMONIA [None]
  - INTERSTITIAL LUNG DISEASE [None]
  - ASTHENIA [None]
  - THROMBOCYTOPENIA [None]
  - HYPOGLYCAEMIA [None]
  - HYPOXIA [None]
  - FLUID OVERLOAD [None]
  - LEUKOPENIA [None]
  - CARDIOMEGALY [None]
  - ACUTE RESPIRATORY FAILURE [None]
  - RENAL FAILURE ACUTE [None]
  - PYREXIA [None]
